FAERS Safety Report 8824014 (Version 1)
Quarter: 2012Q4

REPORT INFORMATION
  Report Type: 
  Country: US (occurrence: US)
  Receive Date: 20121003
  Receipt Date: 20121003
  Transmission Date: 20130627
  Serious: Yes (Other)
  Sender: FDA-Public Use
  Company Number: US-009507513-1210USA000836

PATIENT
  Sex: Female

DRUGS (21)
  1. JANUMET [Suspect]
     Dosage: UNK
     Route: 048
  2. ZOCOR [Suspect]
     Route: 048
  3. KLONOPIN [Suspect]
     Indication: PANIC ATTACK
     Route: 048
  4. ZYRTEC [Suspect]
     Route: 048
  5. GABAPENTIN [Suspect]
     Indication: FIBROMYALGIA
     Dosage: UNK
     Route: 048
  6. VICODIN [Suspect]
     Route: 048
  7. ZANAFLEX [Suspect]
     Route: 048
  8. VALSARTAN [Suspect]
     Route: 048
  9. BUPROPION HYDROCHLORIDE [Suspect]
     Route: 048
  10. LOZOL [Suspect]
     Dosage: Pill
     Route: 048
  11. PRILOSEC [Suspect]
     Route: 048
  12. CARAFATE [Suspect]
     Route: 048
  13. AGGRENOX [Suspect]
     Route: 048
  14. FLONASE [Suspect]
     Dosage: Two sprays per Nostril
     Route: 055
  15. FLOVENT [Suspect]
     Dosage: two puffs, bid
     Route: 065
  16. VENTOLIN (ALBUTEROL) [Suspect]
     Dosage: Two puffs, q2h
     Route: 065
  17. SUMATRIPTAN [Suspect]
     Route: 048
  18. NITROLINGUAL [Suspect]
     Dosage: Spray
     Route: 065
  19. EPIPEN [Suspect]
     Route: 062
  20. LORTAB [Suspect]
     Route: 048
  21. METFORMIN [Suspect]
     Route: 048

REACTIONS (2)
  - Myocardial infarction [Unknown]
  - Memory impairment [Unknown]
